FAERS Safety Report 22530441 (Version 8)
Quarter: 2023Q4

REPORT INFORMATION
  Report Type: Report from Study
  Country: RU (occurrence: RU)
  Receive Date: 20230607
  Receipt Date: 20231015
  Transmission Date: 20240109
  Serious: Yes (Hospitalization)
  Sender: FDA-Public Use
  Company Number: RU-002147023-NVSC2023RU126342

PATIENT
  Age: 20 Year
  Sex: Male
  Weight: 63.45 kg

DRUGS (6)
  1. OFATUMUMAB [Suspect]
     Active Substance: OFATUMUMAB
     Indication: Relapsing multiple sclerosis
     Dosage: 20 MG, Q4W
     Route: 058
     Dates: start: 20221226, end: 20230517
  2. OFATUMUMAB [Suspect]
     Active Substance: OFATUMUMAB
     Dosage: 20 MG, Q4W
     Route: 058
     Dates: start: 20230707
  3. UNSPECIFIED INGREDIENT [Suspect]
     Active Substance: UNSPECIFIED INGREDIENT
     Indication: Relapsing multiple sclerosis
     Dosage: NO TREATMENT
     Route: 065
  4. VIGANTOL [Concomitant]
     Indication: General physical condition
     Dosage: UNK
     Route: 065
     Dates: start: 20200901
  5. FLURBIPROFEN [Concomitant]
     Active Substance: FLURBIPROFEN
     Indication: Viral infection
     Dosage: UNK
     Route: 065
     Dates: start: 20230515, end: 20230519
  6. TOLPERISONE [Concomitant]
     Active Substance: TOLPERISONE
     Indication: Viral infection
     Dosage: UNK
     Route: 065
     Dates: start: 20230515, end: 20230525

REACTIONS (1)
  - Meningitis [Recovered/Resolved]

NARRATIVE: CASE EVENT DATE: 20230522
